FAERS Safety Report 25743972 (Version 1)
Quarter: 2025Q3

REPORT INFORMATION
  Report Type: Report from Study
  Country: US (occurrence: US)
  Receive Date: 20250831
  Receipt Date: 20250831
  Transmission Date: 20251020
  Serious: Yes (Other)
  Sender: ABBVIE
  Company Number: US-ABBVIE-6428365

PATIENT
  Age: 36 Year
  Sex: Male
  Weight: 58.059 kg

DRUGS (2)
  1. SKYRIZI [Suspect]
     Active Substance: RISANKIZUMAB-RZAA
     Indication: Crohn^s disease
     Dosage: FORM STRENGTH 360 MG
     Route: 058
     Dates: start: 20220613
  2. Opti-Men [Concomitant]
     Indication: Product used for unknown indication
     Route: 048

REACTIONS (2)
  - Bile acids increased [Recovering/Resolving]
  - Diarrhoea [Recovered/Resolved]

NARRATIVE: CASE EVENT DATE: 20241201
